FAERS Safety Report 11081204 (Version 1)
Quarter: 2015Q2

REPORT INFORMATION
  Report Type: Report from Study
  Country: US (occurrence: None)
  Receive Date: 20150429
  Receipt Date: 20150429
  Transmission Date: 20150821
  Serious: Yes (Hospitalization)
  Sender: FDA-Public Use
  Company Number: US-001877

PATIENT
  Age: 63 Year
  Sex: Female

DRUGS (2)
  1. GATTEX [Suspect]
     Active Substance: TEDUGLUTIDE\WATER
     Indication: SHORT-BOWEL SYNDROME
     Dosage: DF
     Route: 058
  2. SOLUTIONS FOR PARENTERAL NUTRTION [Concomitant]

REACTIONS (4)
  - Vesicoureteric reflux [None]
  - Sepsis [None]
  - Faeces discoloured [None]
  - Nephrolithiasis [None]

NARRATIVE: CASE EVENT DATE: 20150413
